FAERS Safety Report 4386002-2 (Version None)
Quarter: 2004Q2

REPORT INFORMATION
  Report Type: 
  Country: None (occurrence: None)
  Receive Date: 20040628
  Receipt Date: 20040622
  Transmission Date: 20050107
  Serious: Yes (Life-Threatening, Hospitalization, Other)
  Sender: FDA-Public Use
  Company Number: AE-MERCK-0406USA01954

PATIENT

DRUGS (4)
  1. ASPIRIN [Concomitant]
     Route: 065
  2. ISOKET [Concomitant]
     Route: 065
  3. METOPROLOL [Concomitant]
     Route: 065
  4. ZOCOR [Suspect]
     Route: 048

REACTIONS (4)
  - CARDIAC ARREST [None]
  - CHEST PAIN [None]
  - DYSPNOEA [None]
  - VENTRICULAR FIBRILLATION [None]
